FAERS Safety Report 8300060-1 (Version None)
Quarter: 2012Q2

REPORT INFORMATION
  Report Type: 
  Country: None (occurrence: None)
  Receive Date: 20120420
  Receipt Date: 20120417
  Transmission Date: 20120825
  Serious: Yes (Other)
  Sender: FDA-Public Use
  Company Number: US-PFIZER INC-2012096414

PATIENT
  Sex: Female

DRUGS (1)
  1. CHANTIX [Suspect]
     Dosage: UNK

REACTIONS (5)
  - CONSTIPATION [None]
  - ABDOMINAL DISTENSION [None]
  - ANGIOEDEMA [None]
  - RENAL FAILURE [None]
  - OEDEMA PERIPHERAL [None]
